FAERS Safety Report 13958931 (Version 1)
Quarter: 2017Q3

REPORT INFORMATION
  Report Type: Spontaneous
  Country: US (occurrence: US)
  Receive Date: 20170911
  Receipt Date: 20170911
  Transmission Date: 20171128
  Serious: Yes (Other)
  Sender: FDA-Public Use
  Company Number: None

PATIENT
  Age: 37 Year
  Sex: Female
  Weight: 87.75 kg

DRUGS (3)
  1. IGG [Concomitant]
     Active Substance: HUMAN IMMUNOGLOBULIN G
  2. PLAQUENIL [Concomitant]
     Active Substance: HYDROXYCHLOROQUINE SULFATE
  3. RITUXAN [Suspect]
     Active Substance: RITUXIMAB
     Indication: NEPHRITIS
     Route: 042
     Dates: start: 20140910, end: 20140913

REACTIONS (6)
  - Urinary tract infection [None]
  - Upper respiratory tract infection [None]
  - Nasopharyngitis [None]
  - Malaise [None]
  - Tonsillar disorder [None]
  - Hypogammaglobulinaemia [None]

NARRATIVE: CASE EVENT DATE: 20150910
